FAERS Safety Report 7225330-X (Version None)
Quarter: 2011Q1

REPORT INFORMATION
  Report Type: 
  Country: None (occurrence: None)
  Receive Date: 20110113
  Receipt Date: 20110104
  Transmission Date: 20110831
  Serious: Yes (Other)
  Sender: FDA-Public Use
  Company Number: US-WATSON-2011-00020

PATIENT
  Age: 39 Year
  Sex: Female
  Weight: 90.703 kg

DRUGS (2)
  1. ALBUTEROL SULFATE AND IPRATROPIUM BROMIDE [Suspect]
     Indication: ASTHMA
     Dosage: Q 4 HRS VIA NEBULIZER
     Route: 055
     Dates: start: 20080501, end: 20080601
  2. TESSALON [Concomitant]
     Indication: COUGH
     Dosage: UNKNOWN DOSE Q 6HRS
     Route: 048
     Dates: start: 20080501, end: 20080501

REACTIONS (10)
  - HYPOAESTHESIA [None]
  - DYSKINESIA [None]
  - MUSCLE TIGHTNESS [None]
  - PAIN OF SKIN [None]
  - TREMOR [None]
  - PARAESTHESIA [None]
  - HEREDITARY DISORDER [None]
  - HEADACHE [None]
  - MOVEMENT DISORDER [None]
  - CONDITION AGGRAVATED [None]
